FAERS Safety Report 8385146-8 (Version None)
Quarter: 2012Q2

REPORT INFORMATION
  Report Type: 
  Country: None (occurrence: None)
  Receive Date: 20120524
  Receipt Date: 20120523
  Transmission Date: 20120825
  Serious: Yes (Hospitalization, Other)
  Sender: FDA-Public Use
  Company Number: US-AMGEN-USASP2012031403

PATIENT
  Sex: Female

DRUGS (1)
  1. PROLIA [Suspect]
     Indication: OSTEOPOROSIS POSTMENOPAUSAL
     Dosage: 60 MG, Q6MO
     Route: 030
     Dates: start: 20111206

REACTIONS (6)
  - CARDIAC DISORDER [None]
  - URINARY TRACT INFECTION [None]
  - VERTIGO [None]
  - HERPES ZOSTER [None]
  - DIZZINESS [None]
  - INFLUENZA LIKE ILLNESS [None]
